FAERS Safety Report 5753929-6 (Version None)
Quarter: 2008Q2

REPORT INFORMATION
  Report Type: 
  Country: None (occurrence: None)
  Receive Date: 20080527
  Receipt Date: 20080527
  Transmission Date: 20081010
  Serious: Yes (Other)
  Sender: FDA-Public Use
  Company Number: None

PATIENT
  Age: 54 Year
  Sex: Female
  Weight: 113.3993 kg

DRUGS (1)
  1. PAROXETINE HCL [Suspect]
     Indication: DEPRESSION
     Dosage: 10 TO 20 MG  DAY  PO
     Route: 048
     Dates: start: 20080512, end: 20080525

REACTIONS (3)
  - ASTHMA [None]
  - PRURITUS [None]
  - REACTION TO AZO-DYES [None]
